FAERS Safety Report 8841306 (Version 2)
Quarter: 2015Q4

REPORT INFORMATION
  Report Type: Report from Study
  Country: GB (occurrence: GB)
  Receive Date: 20121015
  Receipt Date: 20151104
  Transmission Date: 20160305
  Serious: Yes (Hospitalization)
  Sender: FDA-Public Use
  Company Number: GB-ASTRAZENECA-2012SE76641

PATIENT
  Age: 23132 Day
  Sex: Male
  Weight: 70 kg

DRUGS (13)
  1. ZD6474 [Suspect]
     Active Substance: VANDETANIB
     Indication: ADENOCARCINOMA PANCREAS
     Route: 048
     Dates: start: 20120810, end: 20120828
  2. ZD6474 [Suspect]
     Active Substance: VANDETANIB
     Indication: ADENOCARCINOMA PANCREAS
     Route: 048
     Dates: start: 20120829, end: 20120921
  3. GEMCITABINE [Suspect]
     Active Substance: GEMCITABINE\GEMCITABINE HYDROCHLORIDE
     Indication: ADENOCARCINOMA PANCREAS
     Route: 042
     Dates: start: 20120704, end: 20120710
  4. GEMCITABINE [Suspect]
     Active Substance: GEMCITABINE\GEMCITABINE HYDROCHLORIDE
     Indication: ADENOCARCINOMA PANCREAS
     Route: 042
     Dates: start: 20120725, end: 20120731
  5. GEMCITABINE [Suspect]
     Active Substance: GEMCITABINE\GEMCITABINE HYDROCHLORIDE
     Indication: ADENOCARCINOMA PANCREAS
     Route: 042
     Dates: start: 20120711, end: 20120717
  6. METOCLOPRAMIDE. [Concomitant]
     Active Substance: METOCLOPRAMIDE
     Indication: NAUSEA
     Route: 048
     Dates: start: 20120510
  7. ORAMORPH [Concomitant]
     Active Substance: MORPHINE SULFATE
     Indication: PAIN
     Route: 048
     Dates: start: 20120510
  8. CYCLIZINE [Concomitant]
     Active Substance: CYCLIZINE
     Indication: NAUSEA
     Route: 048
     Dates: start: 20120704
  9. ZD6474 [Suspect]
     Active Substance: VANDETANIB
     Indication: ADENOCARCINOMA PANCREAS
     Route: 048
     Dates: start: 20120716, end: 20120808
  10. CREON [Concomitant]
     Active Substance: PANCRELIPASE AMYLASE\PANCRELIPASE LIPASE\PANCRELIPASE PROTEASE
     Indication: ENZYME SUPPLEMENTATION
     Route: 048
     Dates: start: 20120715
  11. LOPERAMIDE [Concomitant]
     Active Substance: LOPERAMIDE
     Indication: DIARRHOEA
     Route: 048
     Dates: start: 20120704
  12. ZD6474 [Suspect]
     Active Substance: VANDETANIB
     Indication: ADENOCARCINOMA PANCREAS
     Route: 048
     Dates: start: 20120704, end: 20120711
  13. ZOMORPH [Concomitant]
     Active Substance: MORPHINE SULFATE
     Indication: PAIN
     Route: 048
     Dates: start: 20120510

REACTIONS (1)
  - Pyrexia [Recovered/Resolved]

NARRATIVE: CASE EVENT DATE: 20120921
